FAERS Safety Report 23911082 (Version 2)
Quarter: 2024Q2

REPORT INFORMATION
  Report Type: Spontaneous
  Country: US (occurrence: US)
  Receive Date: 20240528
  Receipt Date: 20240611
  Transmission Date: 20240716
  Serious: No
  Sender: FDA-Public Use
  Company Number: US-ALKERMES INC.-ALK-2024-001347

PATIENT
  Age: 40 Year
  Sex: Male

DRUGS (1)
  1. VIVITROL [Suspect]
     Active Substance: NALTREXONE
     Indication: Substance abuse
     Dosage: 380 MILLIGRAM, QMO
     Route: 030
     Dates: start: 20230810

REACTIONS (3)
  - Off label use [Not Recovered/Not Resolved]
  - Lack of administration site rotation [Not Recovered/Not Resolved]
  - Injection site pain [Recovered/Resolved]

NARRATIVE: CASE EVENT DATE: 20230810
